FAERS Safety Report 18213817 (Version 1)
Quarter: 2020Q3

REPORT INFORMATION
  Report Type: Spontaneous
  Country: US (occurrence: US)
  Receive Date: 20200831
  Receipt Date: 20200831
  Transmission Date: 20201103
  Serious: No
  Sender: FDA-Public Use
  Company Number: US-BAYER-2020-181608

PATIENT
  Sex: Female

DRUGS (1)
  1. ALEVE BACK AND MUSCLE PAIN [Suspect]
     Active Substance: NAPROXEN SODIUM
     Dosage: 1 DF, QD
     Route: 048

REACTIONS (4)
  - Peripheral swelling [Unknown]
  - Incorrect product administration duration [Unknown]
  - Joint swelling [Unknown]
  - Product prescribing issue [Unknown]
